FAERS Safety Report 4946522-6 (Version None)
Quarter: 2006Q1

REPORT INFORMATION
  Report Type: 
  Country: None (occurrence: None)
  Receive Date: 20060317
  Receipt Date: 20060306
  Transmission Date: 20060701
  Serious: Yes (Death, Other)
  Sender: FDA-Public Use
  Company Number: PHBS2006JP03471

PATIENT
  Age: 52 Year
  Sex: Female

DRUGS (5)
  1. CYCLOPHOSPHAMIDE [Concomitant]
  2. AREDIA [Suspect]
     Indication: METASTASES TO BONE
     Dosage: 90 MG, ONCE/SINGLE
     Route: 042
     Dates: start: 20051107, end: 20051107
  3. AREDIA [Suspect]
     Dosage: 90 MG, ONCE/SINGLE
     Route: 042
     Dates: start: 20051206, end: 20051206
  4. AREDIA [Suspect]
     Dosage: 90 MG, ONCE/SINGLE
     Route: 042
     Dates: start: 20060104, end: 20060104
  5. EPIRUBICIN [Concomitant]

REACTIONS (10)
  - ANAEMIA [None]
  - CHEST DISCOMFORT [None]
  - EATING DISORDER [None]
  - MALAISE [None]
  - MALIGNANT NEOPLASM PROGRESSION [None]
  - METASTASES TO THE MEDIASTINUM [None]
  - OXYGEN SATURATION DECREASED [None]
  - PLEURAL EFFUSION [None]
  - PYREXIA [None]
  - RESPIRATORY FAILURE [None]
